FAERS Safety Report 5732617-6 (Version None)
Quarter: 2008Q2

REPORT INFORMATION
  Report Type: 
  Country: None (occurrence: None)
  Receive Date: 20080507
  Receipt Date: 20080423
  Transmission Date: 20081010
  Serious: Yes (Hospitalization)
  Sender: FDA-Public Use
  Company Number: TPA2008A00563

PATIENT
  Age: 57 Year
  Sex: Female
  Weight: 77.1115 kg

DRUGS (2)
  1. ACTOS [Suspect]
     Indication: TYPE 2 DIABETES MELLITUS
     Dosage: 30 MG, 1 IN 1 D, PER ORAL; 15 MG, 1 IN 1 D, PER ORAL
     Route: 048
     Dates: start: 20070101, end: 20080101
  2. ACTOS [Suspect]
     Indication: TYPE 2 DIABETES MELLITUS
     Dosage: 30 MG, 1 IN 1 D, PER ORAL; 15 MG, 1 IN 1 D, PER ORAL
     Route: 048
     Dates: start: 20080101

REACTIONS (5)
  - HEART RATE INCREASED [None]
  - INCREASED APPETITE [None]
  - JOINT SWELLING [None]
  - SPINAL CORD NEOPLASM [None]
  - WEIGHT INCREASED [None]
